FAERS Safety Report 10378681 (Version 3)
Quarter: 2014Q4

REPORT INFORMATION
  Report Type: Spontaneous
  Country: US (occurrence: US)
  Receive Date: 20140812
  Receipt Date: 20141219
  Transmission Date: 20150528
  Serious: Yes (Life-Threatening, Hospitalization)
  Sender: FDA-Public Use
  Company Number: US-BAYER-2014-118574

PATIENT
  Age: 47 Year
  Sex: Female
  Weight: 58.96 kg

DRUGS (5)
  1. MIRENA [Suspect]
     Active Substance: LEVONORGESTREL
     Indication: MENORRHAGIA
     Dosage: 20 MCG/24HR, CONT
     Route: 015
     Dates: start: 20091007, end: 20111202
  2. FLEXERIL [Concomitant]
     Active Substance: CYCLOBENZAPRINE HYDROCHLORIDE
     Indication: HEADACHE
     Dosage: UNK
     Dates: start: 2007
  3. AZITHROMYCIN [Concomitant]
     Active Substance: AZITHROMYCIN ANHYDROUS
     Dosage: 250 MG, ONCE
     Route: 048
  4. AZITHROMYCIN [Concomitant]
     Active Substance: AZITHROMYCIN ANHYDROUS
     Dosage: 250 MG, BID
     Route: 048
  5. FIORINAL [ACETYLSALICYLIC ACID,BUTALBITAL,CAFFEINE,PHENACETIN] [Concomitant]
     Indication: HEADACHE
     Dosage: UNK
     Dates: start: 2007

REACTIONS (8)
  - General physical health deterioration [None]
  - Pelvic pain [None]
  - Uterine injury [None]
  - Injury [None]
  - Abdominal pain lower [None]
  - Uterine pain [None]
  - Uterine perforation [None]
  - Uterine adhesions [None]

NARRATIVE: CASE EVENT DATE: 201112
